FAERS Safety Report 15760862 (Version 3)
Quarter: 2019Q4

REPORT INFORMATION
  Report Type: Spontaneous
  Country: US (occurrence: US)
  Receive Date: 20181226
  Receipt Date: 20191017
  Transmission Date: 20200122
  Serious: Yes (Other)
  Sender: FDA-Public Use
  Company Number: US-PFIZER INC-2018529140

PATIENT
  Age: 47 Year
  Sex: Female
  Weight: 102.4 kg

DRUGS (2)
  1. IBRANCE [Suspect]
     Active Substance: PALBOCICLIB
     Indication: BREAST CANCER METASTATIC
     Dosage: 125 MG, CYCLIC (D1-21 ONCE A DAY Q28 DAYS)
     Route: 048
     Dates: start: 20181124, end: 20190920
  2. FULVESTRANT. [Concomitant]
     Active Substance: FULVESTRANT
     Dosage: UNK

REACTIONS (5)
  - Oropharyngeal pain [Unknown]
  - Nasal dryness [Unknown]
  - Pulmonary embolism [Unknown]
  - Fatigue [Unknown]
  - Neoplasm progression [Unknown]
